FAERS Safety Report 18955668 (Version 1)
Quarter: 2021Q1

REPORT INFORMATION
  Report Type: Spontaneous
  Country: FR (occurrence: FR)
  Receive Date: 20210301
  Receipt Date: 20210301
  Transmission Date: 20210420
  Serious: Yes (Life-Threatening, Other)
  Sender: FDA-Public Use
  Company Number: FR-PFIZER INC-2021199730

PATIENT
  Age: 6 Year
  Sex: Male
  Weight: 17 kg

DRUGS (7)
  1. CALCIDOSE [CALCIUM CARBONATE;COLECALCIFEROL;PHYTOMENADIONE] [Concomitant]
  2. SALBUTAMOL [Concomitant]
     Active Substance: ALBUTEROL
  3. UVEDOSE [Concomitant]
     Active Substance: CHOLECALCIFEROL
  4. METHOTREXATE SODIUM. [Suspect]
     Active Substance: METHOTREXATE SODIUM
     Indication: B-CELL TYPE ACUTE LEUKAEMIA
     Dosage: 20 MG, WEEKLY
     Route: 048
     Dates: start: 201903, end: 20210107
  5. FLIXOTIDE [Concomitant]
     Active Substance: FLUTICASONE PROPIONATE
  6. BACTRIM [Interacting]
     Active Substance: SULFAMETHOXAZOLE\TRIMETHOPRIM
     Indication: ANTIFUNGAL PROPHYLAXIS
     Dosage: 1200 MG, WEEKLY
     Route: 048
     Dates: start: 201809, end: 20210208
  7. XALUPRINE [Suspect]
     Active Substance: MERCAPTOPURINE
     Indication: B-CELL TYPE ACUTE LEUKAEMIA
     Dosage: 12 MG, 1X/DAY
     Route: 048
     Dates: start: 201903, end: 20210107

REACTIONS (2)
  - Drug interaction [Unknown]
  - Pancytopenia [Recovered/Resolved]

NARRATIVE: CASE EVENT DATE: 20210106
